FAERS Safety Report 9503879 (Version 1)
Quarter: 2013Q3

REPORT INFORMATION
  Report Type: Spontaneous
  Country: US (occurrence: None)
  Receive Date: 20130905
  Receipt Date: 20130905
  Transmission Date: 20140515
  Serious: Yes (Hospitalization, Disabling)
  Sender: FDA-Public Use
  Company Number: None

PATIENT
  Age: 65 Year
  Sex: Female
  Weight: 56.7 kg

DRUGS (1)
  1. TRIAMCINOLONE ACETONIDE [Suspect]
     Indication: ECZEMA
     Dosage: APPLY TWICE DAILY  TWICE DAILY  APPLIED TO A SURFACE, USUALLY THE SKIN
     Route: 061
     Dates: start: 20130116, end: 20130216

REACTIONS (5)
  - Erythema [None]
  - Pruritus [None]
  - Pain [None]
  - Skin exfoliation [None]
  - Facial pain [None]
